FAERS Safety Report 4379204-2 (Version None)
Quarter: 2004Q2

REPORT INFORMATION
  Report Type: 
  Country: None (occurrence: None)
  Receive Date: 20040610
  Receipt Date: 20030416
  Transmission Date: 20050107
  Serious: Yes (Hospitalization)
  Sender: FDA-Public Use
  Company Number: NSADSS2003007019

PATIENT
  Age: 40 Year
  Sex: Male
  Weight: 136.0791 kg

DRUGS (7)
  1. PROPULSID [Suspect]
     Indication: GASTROOESOPHAGEAL REFLUX DISEASE
     Dosage: 10 MG, ORAL
     Route: 048
     Dates: start: 19950101, end: 19970101
  2. PRILOSEC [Concomitant]
  3. ZOLOFT [Concomitant]
  4. TYLENOL WITH CODEINE (PANADEINE CO) [Concomitant]
  5. DAYPRO [Concomitant]
  6. FLEXERIL [Concomitant]
  7. ROLAIDAS (DIHYDROXYALUMINUM SODIUM CARBONATE) [Concomitant]

REACTIONS (23)
  - ARRHYTHMIA [None]
  - BACK PAIN [None]
  - BLOOD GLUCOSE INCREASED [None]
  - CARDIOMYOPATHY [None]
  - CHEST PAIN [None]
  - DILATATION VENTRICULAR [None]
  - DIZZINESS [None]
  - DYSPNOEA [None]
  - GROIN PAIN [None]
  - LUNG NEOPLASM [None]
  - MUSCLE STRAIN [None]
  - MUSCULOSKELETAL CHEST PAIN [None]
  - MYALGIA [None]
  - OEDEMA [None]
  - PAIN [None]
  - PAIN IN EXTREMITY [None]
  - RHYTHM IDIOVENTRICULAR [None]
  - SINUS BRADYCARDIA [None]
  - SLEEP APNOEA SYNDROME [None]
  - VENTRICULAR EXTRASYSTOLES [None]
  - VENTRICULAR TACHYCARDIA [None]
  - VIRAL INFECTION [None]
  - WEIGHT INCREASED [None]
